FAERS Safety Report 4366006-6 (Version None)
Quarter: 2004Q2

REPORT INFORMATION
  Report Type: 
  Country: None (occurrence: None)
  Receive Date: 20040526
  Receipt Date: 20040526
  Transmission Date: 20050107
  Serious: Yes (Life-Threatening, Hospitalization)
  Sender: FDA-Public Use
  Company Number: None

PATIENT
  Age: 80 Year
  Sex: Female
  Weight: 48.5 kg

DRUGS (10)
  1. WARFARIN SODIUM [Suspect]
     Dosage: 2.5 MG DAILY ORAL
     Route: 048
  2. AMIODARONE HCL [Suspect]
     Dosage: 200 MG DAILY ORAL
     Route: 048
  3. ALLEGRA [Concomitant]
  4. DIGOXIN [Concomitant]
  5. DOXEPIN HCL [Concomitant]
  6. LASIX [Concomitant]
  7. LISINOPRIL [Concomitant]
  8. KCL TAB [Concomitant]
  9. PROTONIX [Concomitant]
  10. SYNTHROID [Concomitant]

REACTIONS (2)
  - ANAEMIA [None]
  - UPPER GASTROINTESTINAL HAEMORRHAGE [None]
